FAERS Safety Report 14199306 (Version 1)
Quarter: 2017Q4

REPORT INFORMATION
  Report Type: Spontaneous
  Country: US (occurrence: None)
  Receive Date: 20171116
  Receipt Date: 20171116
  Transmission Date: 20180321
  Serious: Yes (Hospitalization)
  Sender: FDA-Public Use
  Company Number: None

PATIENT
  Sex: Female

DRUGS (11)
  1. ADCIRCA [Suspect]
     Active Substance: TADALAFIL
     Indication: PULMONARY ARTERIAL HYPERTENSION
     Route: 048
     Dates: start: 20151230
  2. GLUCO/CHONDR [Concomitant]
  3. GENERLAC [Concomitant]
     Active Substance: LACTULOSE
  4. PANTOPRAZOLE [Concomitant]
     Active Substance: PANTOPRAZOLE
  5. LACTULOSE. [Concomitant]
     Active Substance: LACTULOSE
  6. CLARITIN [Concomitant]
     Active Substance: LORATADINE
  7. URSODIOL. [Suspect]
     Active Substance: URSODIOL
     Route: 048
     Dates: start: 20170929
  8. OMEPRAZOLE. [Concomitant]
     Active Substance: OMEPRAZOLE
  9. FUROSEMIDE. [Concomitant]
     Active Substance: FUROSEMIDE
  10. XIFAXAN [Concomitant]
     Active Substance: RIFAXIMIN
  11. RESTASIS [Concomitant]
     Active Substance: CYCLOSPORINE

REACTIONS (2)
  - Liver disorder [None]
  - Pneumonia [None]

NARRATIVE: CASE EVENT DATE: 2017
